FAERS Safety Report 4899653-3 (Version None)
Quarter: 2006Q1

REPORT INFORMATION
  Report Type: 
  Country: None (occurrence: None)
  Receive Date: 20060131
  Receipt Date: 20060120
  Transmission Date: 20060701
  Serious: Yes (Other)
  Sender: FDA-Public Use
  Company Number: 2006BH001050

PATIENT
  Sex: Male

DRUGS (1)
  1. PROMETHAZINE [Suspect]
     Dosage: 25 MG; IV
     Route: 042
     Dates: start: 20030223, end: 20030223

REACTIONS (5)
  - EMOTIONAL DISORDER [None]
  - INJECTION SITE EXTRAVASATION [None]
  - MENTAL DISORDER [None]
  - PAIN [None]
  - SOFT TISSUE INJURY [None]
